FAERS Safety Report 9940496 (Version 1)
Quarter: 2014Q1

REPORT INFORMATION
  Report Type: Spontaneous
  Country: US (occurrence: US)
  Receive Date: 20140303
  Receipt Date: 20140303
  Transmission Date: 20141002
  Serious: Yes (Other)
  Sender: FDA-Public Use
  Company Number: US-PFIZER INC-2014056280

PATIENT
  Age: 48 Year
  Sex: Female
  Weight: 60.77 kg

DRUGS (5)
  1. NEURONTIN [Suspect]
     Dosage: 600 MG, 4X/DAY
     Route: 048
  2. RELPAX [Suspect]
     Dosage: 40 MG, AS NEEDED
     Route: 048
  3. PROZAC [Concomitant]
     Dosage: UNK
  4. CELEXA [Concomitant]
     Dosage: UNK
  5. TOPAMAX [Concomitant]
     Dosage: UNK

REACTIONS (6)
  - Intentional overdose [Unknown]
  - Suicide attempt [Unknown]
  - Disturbance in attention [Unknown]
  - Memory impairment [Unknown]
  - Panic attack [Unknown]
  - Post-traumatic stress disorder [Unknown]
